FAERS Safety Report 18957754 (Version 1)
Quarter: 2021Q1

REPORT INFORMATION
  Report Type: Spontaneous
  Country: US (occurrence: US)
  Receive Date: 20210301
  Receipt Date: 20210301
  Transmission Date: 20210420
  Serious: Yes (Death, Life-Threatening, Hospitalization)
  Sender: FDA-Public Use
  Company Number: None

PATIENT
  Age: 75 Year
  Sex: Male

DRUGS (1)
  1. LISINOPRIL (LISINOPRIL 5MG TAB) [Suspect]
     Active Substance: LISINOPRIL
     Indication: HYPERTENSION
     Route: 048
     Dates: start: 20190607, end: 20201222

REACTIONS (7)
  - Rhabdomyolysis [None]
  - Metabolic acidosis [None]
  - Hypotension [None]
  - Shock [None]
  - Acute kidney injury [None]
  - Fall [None]
  - Renal tubular necrosis [None]

NARRATIVE: CASE EVENT DATE: 20201222
